FAERS Safety Report 9146989 (Version 1)
Quarter: 2013Q1

REPORT INFORMATION
  Report Type: Spontaneous
  Country: IN (occurrence: IN)
  Receive Date: 20130307
  Receipt Date: 20130307
  Transmission Date: 20140127
  Serious: Yes (Death, Hospitalization, Other)
  Sender: FDA-Public Use
  Company Number: IN-009507513-1303IND001967

PATIENT
  Age: 57 Year
  Sex: 0

DRUGS (1)
  1. JANUMET [Suspect]
     Dosage: 50/500MG QD
     Route: 048

REACTIONS (3)
  - Myocardial infarction [Fatal]
  - Fluid retention [Unknown]
  - Inappropriate schedule of drug administration [Unknown]
